FAERS Safety Report 20484304 (Version 1)
Quarter: 2022Q1

REPORT INFORMATION
  Report Type: Report from Study
  Country: GB (occurrence: GB)
  Receive Date: 20220217
  Receipt Date: 20220217
  Transmission Date: 20220424
  Serious: Yes (Death)
  Sender: FDA-Public Use
  Company Number: GB-CELLTRION INC.-2022GB000916

PATIENT
  Sex: Female

DRUGS (29)
  1. DOCETAXEL [Suspect]
     Active Substance: DOCETAXEL
     Indication: Breast cancer metastatic
     Dosage: 120 MG, EVERY 3 WEEKS
     Route: 042
     Dates: start: 20160314, end: 20160810
  2. LETROZOLE [Suspect]
     Active Substance: LETROZOLE
     Indication: Breast cancer metastatic
     Dosage: 2.5 MG, EVERY 1 DAY
     Route: 048
     Dates: start: 20190709
  3. TAMOXIFEN [Suspect]
     Active Substance: TAMOXIFEN
     Indication: Breast cancer metastatic
     Dosage: 20 MG, EVERY 1 DAY
     Route: 048
     Dates: start: 20161010, end: 20190708
  4. TRASTUZUMAB [Suspect]
     Active Substance: TRASTUZUMAB
     Indication: Breast cancer metastatic
     Dosage: 600 MG, EVERY 3 WEEKS
     Route: 042
     Dates: start: 20160425
  5. PERTUZUMAB [Suspect]
     Active Substance: PERTUZUMAB
     Indication: Breast cancer metastatic
     Dosage: 420 MG, EVERY 3 WEEKS (PHARMACEUTICAL DOSE FORM: 230)
     Route: 042
     Dates: start: 20160516
  6. PERTUZUMAB [Suspect]
     Active Substance: PERTUZUMAB
     Dosage: 840 MG, EVERY 3 WEEKS
     Route: 042
     Dates: start: 20160425, end: 20160425
  7. PERTUZUMAB [Suspect]
     Active Substance: PERTUZUMAB
     Dosage: 420 MG, EVERY 3 WEEKS (PHARMACEUTICAL DOSE FORM: 230)
     Route: 042
     Dates: start: 20160516
  8. AMITRIPTYLINE [Concomitant]
     Active Substance: AMITRIPTYLINE
     Indication: Metastases to central nervous system
     Dosage: 10 MG, EVERY 1 DAY
     Route: 048
     Dates: start: 20210407
  9. BENZYDAMINE HYDROCHLORIDE [Concomitant]
     Active Substance: BENZYDAMINE HYDROCHLORIDE
     Indication: Mouth ulceration
     Dosage: 10 ML, EVERY 0.25 DAY
     Route: 048
     Dates: start: 20160611
  10. BUTYLSCOPOLAMINE BROMIDE [Concomitant]
     Active Substance: BUTYLSCOPOLAMINE BROMIDE
     Indication: Abdominal pain
     Dosage: 20 MG, EVERY 0.25 DAY
     Route: 048
     Dates: start: 20160625
  11. CEPHRADINE [Concomitant]
     Active Substance: CEPHRADINE
     Dosage: 250 MG, EVERY 0.25 DAY
     Route: 048
     Dates: start: 20201207, end: 20201214
  12. CODEINE [Concomitant]
     Active Substance: CODEINE
     Indication: Phantom limb syndrome
     Dosage: 30 MG, EVERY 0.5 DAY
     Route: 048
     Dates: start: 20160919
  13. DEXAMETHASONE [Concomitant]
     Active Substance: DEXAMETHASONE
     Indication: Metastases to central nervous system
     Dosage: 2.5 MG, EVERY 1 DAY
     Route: 048
     Dates: start: 20191203
  14. DEXAMETHASONE [Concomitant]
     Active Substance: DEXAMETHASONE
     Dosage: 4MG EVERY 0.5 DAY
     Route: 048
     Dates: start: 201909, end: 20191010
  15. DEXAMETHASONE [Concomitant]
     Active Substance: DEXAMETHASONE
     Dosage: 4MG EVERY 1 DAY
     Route: 048
     Dates: start: 20200611
  16. DEXAMETHASONE [Concomitant]
     Active Substance: DEXAMETHASONE
     Dosage: 4MG EVERY 1 DAY
     Route: 048
     Dates: start: 20210216
  17. DEXAMETHASONE [Concomitant]
     Active Substance: DEXAMETHASONE
     Dosage: 1MG EVERY 1 DAY
     Route: 048
     Dates: start: 20191223
  18. DEXAMETHASONE [Concomitant]
     Active Substance: DEXAMETHASONE
     Dosage: 0.5MG EVERY 1 DAY
     Route: 048
     Dates: start: 20191224, end: 202002
  19. DEXAMETHASONE [Concomitant]
     Active Substance: DEXAMETHASONE
     Dosage: 2MG EVERY 1 DAY
     Route: 048
     Dates: start: 20191125
  20. DOCUSATE SODIUM [Concomitant]
     Active Substance: DOCUSATE SODIUM
     Indication: Constipation
     Dosage: 100 MG, PRN (PHARMACEUTICAL DOSE FORM: 245)
     Route: 048
     Dates: start: 20210228
  21. FLUCLOXACILLIN [Concomitant]
     Active Substance: FLUCLOXACILLIN
     Indication: Cellulitis
     Dosage: 500 MG, EVERY 0.25 DAY
     Route: 048
     Dates: start: 20201215, end: 20201222
  22. IBUPROFEN [Concomitant]
     Active Substance: IBUPROFEN
     Indication: Musculoskeletal pain
     Dosage: 200 MG, PRN (PHARMACEUTICAL DOSE FORM: 245)
     Route: 048
     Dates: start: 20160612
  23. KADCYLA [Concomitant]
     Active Substance: ADO-TRASTUZUMAB EMTANSINE
     Indication: Pulmonary mass
     Dosage: 220 MG, EVERY 1 MONTH (PHARMACEUTICAL DOSE FORM: 230)
     Route: 042
     Dates: start: 20200414
  24. POLYETHYLENE GLYCOL 3350\POTASSIUM CHLORIDE\SODIUM BICARBONATE\SODIUM [Concomitant]
     Active Substance: POLYETHYLENE GLYCOL 3350\POTASSIUM CHLORIDE\SODIUM BICARBONATE\SODIUM CHLORIDE
     Dosage: 1 EVERY 1 DAY
     Route: 048
     Dates: start: 20160627
  25. NITROFURANTOIN [Concomitant]
     Active Substance: NITROFURANTOIN
     Indication: Urinary tract infection
     Dosage: 100 MG, EVERY 0.5 DAY
     Route: 048
     Dates: start: 20201202, end: 20201209
  26. OMEPRAZOLE [Concomitant]
     Active Substance: OMEPRAZOLE
     Indication: Metastases to central nervous system
     Dosage: 20 MG, EVERY 1 DAY (PHARMACEUTICAL DOSE FORM: 245)
     Route: 048
     Dates: start: 201909
  27. MORPHINE SULFATE [Concomitant]
     Active Substance: MORPHINE SULFATE
     Indication: Metastases to central nervous system
     Dosage: 10 MG, PRN
     Route: 048
     Dates: start: 20210311
  28. ACETAMINOPHEN [Concomitant]
     Active Substance: ACETAMINOPHEN
     Indication: Musculoskeletal pain
     Dosage: 1 G, PRN (PHARMACEUTICAL DOSE FORM: 245)
     Route: 048
     Dates: start: 20160612
  29. PERMETHRIN [Concomitant]
     Active Substance: PERMETHRIN
     Indication: Skin infection
     Dosage: 5 % (PHARMACEUTICAL DOSE FORM: 17)
     Route: 061
     Dates: start: 20210311, end: 20210311

REACTIONS (3)
  - Death [Fatal]
  - Vision blurred [Recovered/Resolved]
  - Fatigue [Recovered/Resolved]

NARRATIVE: CASE EVENT DATE: 20161101
